APPROVED DRUG PRODUCT: ZERVIATE
Active Ingredient: CETIRIZINE HYDROCHLORIDE
Strength: EQ 0.24% BASE
Dosage Form/Route: SOLUTION/DROPS;OPHTHALMIC
Application: N208694 | Product #001
Applicant: HARROW EYE LLC
Approved: May 30, 2017 | RLD: Yes | RS: Yes | Type: RX

PATENTS:
Patent 9993471 | Expires: Mar 15, 2030
Patent 8829005 | Expires: Mar 15, 2030
Patent 9254286 | Expires: Jul 9, 2032
Patent 9750684 | Expires: Mar 15, 2030
Patent 8829005*PED | Expires: Sep 15, 2030
Patent 9254286*PED | Expires: Jan 9, 2033